FAERS Safety Report 19536643 (Version 3)
Quarter: 2024Q2

REPORT INFORMATION
  Report Type: Spontaneous
  Country: US (occurrence: US)
  Receive Date: 20210713
  Receipt Date: 20240412
  Transmission Date: 20240716
  Serious: Yes (Other)
  Sender: FDA-Public Use
  Company Number: US-GILEAD-2021-0540030

PATIENT
  Age: 62 Year
  Sex: Female
  Weight: 64.7 kg

DRUGS (2)
  1. YESCARTA [Suspect]
     Active Substance: AXICABTAGENE CILOLEUCEL
     Indication: Diffuse large B-cell lymphoma
     Dosage: SINGLE
     Route: 042
     Dates: start: 20190821, end: 20190821
  2. ENTECAVIR [Concomitant]
     Active Substance: ENTECAVIR
     Dosage: UNK

REACTIONS (5)
  - Large granular lymphocytosis [Not Recovered/Not Resolved]
  - Neutropenia [Unknown]
  - Cytokine release syndrome [Unknown]
  - Anaemia [Unknown]
  - Thrombocytopenia [Unknown]

NARRATIVE: CASE EVENT DATE: 20191201
